FAERS Safety Report 4694244-1 (Version None)
Quarter: 2005Q2

REPORT INFORMATION
  Report Type: 
  Country: None (occurrence: None)
  Receive Date: 20050617
  Receipt Date: 20050617
  Transmission Date: 20051028
  Serious: No
  Sender: FDA-Public Use
  Company Number: None

PATIENT
  Age: 57 Year
  Sex: Female
  Weight: 85.7298 kg

DRUGS (1)
  1. LASIX [Suspect]
     Dosage: 40 MG PO
     Route: 048
     Dates: start: 20050616

REACTIONS (2)
  - FLUID RETENTION [None]
  - THERAPEUTIC RESPONSE UNEXPECTED WITH DRUG SUBSTITUTION [None]
